FAERS Safety Report 9125306 (Version 2)
Quarter: 2013Q1

REPORT INFORMATION
  Report Type: Spontaneous
  Country: US (occurrence: US)
  Receive Date: 20130121
  Receipt Date: 20130125
  Transmission Date: 20140127
  Serious: No
  Sender: FDA-Public Use
  Company Number: US-PFIZER INC-2013024532

PATIENT
  Age: 32 Year
  Sex: Male
  Weight: 81.63 kg

DRUGS (2)
  1. CHANTIX [Suspect]
     Indication: SMOKING CESSATION THERAPY
     Dosage: 0.5 MG, 1X/DAY
     Dates: start: 20121226
  2. CHANTIX [Suspect]
     Dosage: UNK, 2X/DAY
     Dates: end: 20130118

REACTIONS (3)
  - Malaise [Unknown]
  - Nausea [Unknown]
  - Abnormal dreams [Unknown]
